FAERS Safety Report 8571665-8 (Version None)
Quarter: 2012Q3

REPORT INFORMATION
  Report Type: 
  Country: None (occurrence: None)
  Receive Date: 20120806
  Receipt Date: 20120725
  Transmission Date: 20120928
  Serious: Yes (Other)
  Sender: FDA-Public Use
  Company Number: CA-JNJFOC-20120200884

PATIENT
  Sex: Female
  Weight: 60.5 kg

DRUGS (13)
  1. REMICADE [Suspect]
     Route: 042
     Dates: start: 20080101
  2. REMICADE [Suspect]
     Dosage: APPROXIMATE TOTAL NUMBER OF INFUSIONS: 24
     Route: 042
     Dates: start: 20090409
  3. CRESTOR [Concomitant]
     Route: 065
  4. ASACOL [Concomitant]
     Route: 065
  5. REMICADE [Suspect]
     Dosage: APPROXIMATE TOTAL NUMBER OF INFUSIONS: 24
     Route: 042
     Dates: start: 20090904
  6. REMICADE [Suspect]
     Indication: COLITIS ULCERATIVE
     Route: 042
     Dates: start: 20080101
  7. REMICADE [Suspect]
     Indication: RHEUMATOID ARTHRITIS
     Dosage: APPROXIMATE TOTAL NUMBER OF INFUSIONS: 24
     Route: 042
     Dates: start: 20090904
  8. VITAMIN D [Concomitant]
     Route: 065
  9. REMICADE [Suspect]
     Route: 042
     Dates: start: 20120124
  10. CALCIUM [Concomitant]
     Route: 065
  11. HYDROCORTISONE [Concomitant]
     Route: 042
     Dates: start: 20120503
  12. REMICADE [Suspect]
     Dosage: APPROXIMATE TOTAL NUMBER OF INFUSIONS: 24
     Route: 042
     Dates: start: 20090409
  13. REMICADE [Suspect]
     Route: 042
     Dates: start: 20120124

REACTIONS (3)
  - VULVOVAGINAL DISCOMFORT [None]
  - VAGINAL HAEMORRHAGE [None]
  - INFUSION RELATED REACTION [None]
